FAERS Safety Report 14550840 (Version 1)
Quarter: 2018Q1

REPORT INFORMATION
  Report Type: Spontaneous
  Country: DK (occurrence: DK)
  Receive Date: 20180220
  Receipt Date: 20180220
  Transmission Date: 20180509
  Serious: Yes (Other)
  Sender: FDA-Public Use
  Company Number: DK-UCBSA-2018005746

PATIENT
  Age: 20 Year
  Sex: Male
  Weight: 67 kg

DRUGS (2)
  1. BRIVIACT [Suspect]
     Active Substance: BRIVARACETAM
     Indication: EPILEPSY
     Dosage: 100 MG DAILY DOSE
     Route: 048
     Dates: start: 20170113
  2. BUCCOLAM [Interacting]
     Active Substance: MIDAZOLAM HYDROCHLORIDE
     Indication: EPILEPSY
     Dosage: 10 MG, UNK
     Route: 048
     Dates: start: 20171004

REACTIONS (2)
  - Drug interaction [Unknown]
  - Epilepsy [Recovering/Resolving]

NARRATIVE: CASE EVENT DATE: 20171209
